FAERS Safety Report 4656735-9 (Version None)
Quarter: 2005Q2

REPORT INFORMATION
  Report Type: 
  Country: None (occurrence: None)
  Receive Date: 20050509
  Receipt Date: 20050428
  Transmission Date: 20051028
  Serious: Yes (Hospitalization, Other)
  Sender: FDA-Public Use
  Company Number: PHEH2005US04916

PATIENT
  Sex: Female

DRUGS (3)
  1. LESCOL XL [Suspect]
     Dates: start: 20050301
  2. PREMARIN [Concomitant]
  3. CONCERTA [Concomitant]

REACTIONS (2)
  - CHEST PAIN [None]
  - HYPOTENSION [None]
